FAERS Safety Report 10052334 (Version 1)
Quarter: 2014Q2

REPORT INFORMATION
  Report Type: Report from Study
  Country: CA (occurrence: CA)
  Receive Date: 20140402
  Receipt Date: 20140402
  Transmission Date: 20141212
  Serious: Yes (Other)
  Sender: FDA-Public Use
  Company Number: CA-JNJFOC-20140314867

PATIENT
  Age: 51 Year
  Sex: Male
  Weight: 147.42 kg

DRUGS (1)
  1. STELARA [Suspect]
     Indication: PSORIASIS
     Dosage: AT WEEK 0, 4, 16, 28 AND AS DIRECTED BY THE PHYSICIAN.
     Route: 058
     Dates: start: 20140227

REACTIONS (1)
  - Cellulitis [Unknown]
